FAERS Safety Report 18634857 (Version 1)
Quarter: 2020Q4

REPORT INFORMATION
  Report Type: Spontaneous
  Country: US (occurrence: US)
  Receive Date: 20201218
  Receipt Date: 20201218
  Transmission Date: 20210114
  Serious: Yes (Other)
  Sender: FDA-Public Use
  Company Number: US-BAYER-2020-272042

PATIENT
  Age: 74 Year

DRUGS (2)
  1. LINZESS [Suspect]
     Active Substance: LINACLOTIDE
  2. MIRALAX [Suspect]
     Active Substance: POLYETHYLENE GLYCOL 3350
     Indication: GASTROINTESTINAL DISORDER
     Route: 065

REACTIONS (4)
  - Product use issue [None]
  - Therapeutic product effect delayed [None]
  - Haemorrhoidal haemorrhage [Unknown]
  - Product prescribing issue [Unknown]
